FAERS Safety Report 4265925-9 (Version None)
Quarter: 2004Q1

REPORT INFORMATION
  Report Type: 
  Country: None (occurrence: None)
  Receive Date: 20040106
  Receipt Date: 20031224
  Transmission Date: 20041129
  Serious: Yes (Life-Threatening, Hospitalization)
  Sender: FDA-Public Use
  Company Number: NL-JNJFOC-20031204738

PATIENT
  Age: 74 Year
  Sex: Male

DRUGS (9)
  1. REMICADE [Suspect]
     Indication: RHEUMATOID ARTHRITIS
     Dosage: 300 MG, 1 IN 8 WEEK, INTRAVENOUS
     Route: 042
     Dates: start: 20010222, end: 20030717
  2. SULFASALAZIN (TABLETS) SULFASALAZINE [Concomitant]
  3. OMEPRAZOLE [Concomitant]
  4. SELOKEEN (METOPROLOL TARTRATE) TABLETS [Concomitant]
  5. PREDNISON (PREDNISONE) TABLETS [Concomitant]
  6. LEDERTREXATE (METHOTREXATE) TABLETS [Concomitant]
  7. CHLOTRIDE (CHLOROTHIAZIDE) TABLETS [Concomitant]
  8. DIDROKIT (DIDROKIT) TABLETS [Concomitant]
  9. CALCIUM SANDOZ FORTE [Concomitant]

REACTIONS (1)
  - MALIGNANT MELANOMA [None]
